FAERS Safety Report 10571722 (Version 1)
Quarter: 2014Q4

REPORT INFORMATION
  Report Type: Spontaneous
  Country: US (occurrence: US)
  Receive Date: 20141107
  Receipt Date: 20141107
  Transmission Date: 20150529
  Serious: Yes (Congenital Anomaly, Other)
  Sender: FDA-Public Use
  Company Number: US-ELI_LILLY_AND_COMPANY-US201410011387

PATIENT

DRUGS (5)
  1. PHENERGAN [Concomitant]
     Active Substance: PROMETHAZINE HYDROCHLORIDE
     Indication: VOMITING
     Dosage: 25 MG, PRN
     Route: 064
     Dates: start: 19990628
  2. TENORMIN [Concomitant]
     Active Substance: ATENOLOL
     Indication: PRODUCT USED FOR UNKNOWN INDICATION
     Dosage: 5 MG, EACH MORNING
     Dates: end: 19990503
  3. PROZAC [Suspect]
     Active Substance: FLUOXETINE HYDROCHLORIDE
     Indication: DEPRESSION
     Dosage: 20 MG, QD
     Route: 064
  4. ALPRAZOLAM. [Concomitant]
     Active Substance: ALPRAZOLAM
     Indication: PRODUCT USED FOR UNKNOWN INDICATION
     Dosage: UNK
     Route: 065
  5. TENORMIN [Concomitant]
     Active Substance: ATENOLOL
     Dosage: 2.5 MG, EACH EVENING
     Dates: end: 19990503

REACTIONS (6)
  - Apnoea neonatal [Recovered/Resolved]
  - Exposure during breast feeding [Recovered/Resolved]
  - Foetal exposure during pregnancy [Recovered/Resolved]
  - Meconium stain [Recovered/Resolved]
  - Cardiac murmur functional [Not Recovered/Not Resolved]
  - Patent ductus arteriosus [Recovered/Resolved]
